FAERS Safety Report 24593762 (Version 1)
Quarter: 2024Q4

REPORT INFORMATION
  Report Type: Spontaneous
  Country: US (occurrence: None)
  Receive Date: 20241108
  Receipt Date: 20241108
  Transmission Date: 20250115
  Serious: Yes (Hospitalization)
  Sender: Public
  Company Number: None

PATIENT
  Age: 26 Year
  Sex: Male
  Weight: 96.75 kg

DRUGS (2)
  1. MONTELUKAST [Suspect]
     Active Substance: MONTELUKAST
     Indication: Multiple allergies
     Dosage: FREQUENCY : AT BEDTIME;?
     Route: 048
     Dates: start: 20191101, end: 20240922
  2. MONTELUKAST [Suspect]
     Active Substance: MONTELUKAST
     Indication: Asthma

REACTIONS (13)
  - Depression [None]
  - Insomnia [None]
  - Muscle twitching [None]
  - Agitation [None]
  - Stress [None]
  - Vomiting [None]
  - Withdrawal syndrome [None]
  - Panic attack [None]
  - Therapy cessation [None]
  - Neuropsychological symptoms [None]
  - Suicidal ideation [None]
  - Generalised anxiety disorder [None]
  - Drug ineffective [None]

NARRATIVE: CASE EVENT DATE: 20241104
